FAERS Safety Report 16746916 (Version 2)
Quarter: 2019Q3

REPORT INFORMATION
  Report Type: Report from Study
  Country: MX (occurrence: MX)
  Receive Date: 20190827
  Receipt Date: 20190926
  Transmission Date: 20191005
  Serious: Yes (Other)
  Sender: FDA-Public Use
  Company Number: MX-JNJFOC-20190829867

PATIENT
  Age: 48 Year
  Sex: Female
  Weight: 63 kg

DRUGS (1)
  1. REMICADE [Suspect]
     Active Substance: INFLIXIMAB
     Indication: ANKYLOSING SPONDYLITIS
     Route: 042
     Dates: start: 20181113

REACTIONS (5)
  - Incision site impaired healing [Not Recovered/Not Resolved]
  - Stress [Unknown]
  - Off label use [Unknown]
  - Product use issue [Unknown]
  - Hysterectomy [Not Recovered/Not Resolved]

NARRATIVE: CASE EVENT DATE: 20181113
